FAERS Safety Report 14377426 (Version 1)
Quarter: 2018Q1

REPORT INFORMATION
  Report Type: Spontaneous
  Country: US (occurrence: US)
  Receive Date: 20180111
  Receipt Date: 20180111
  Transmission Date: 20180509
  Serious: Yes (Hospitalization, Other)
  Sender: FDA-Public Use
  Company Number: US-DSJP-DSU-2017-145268

PATIENT

DRUGS (4)
  1. BENICAR [Suspect]
     Active Substance: OLMESARTAN MEDOXOMIL
     Indication: ESSENTIAL HYPERTENSION
     Dosage: 20 MG, QD
     Route: 048
     Dates: start: 20030801, end: 20100929
  2. AZOR [Suspect]
     Active Substance: AMLODIPINE BESYLATE\OLMESARTAN MEDOXOMIL
     Indication: ESSENTIAL HYPERTENSION
     Dosage: 5-20 MG, QD
     Route: 048
     Dates: end: 20130424
  3. BENICAR [Suspect]
     Active Substance: OLMESARTAN MEDOXOMIL
     Dosage: 40 MG, QD
     Route: 048
     Dates: start: 20130424, end: 20141014
  4. BENICAR HCT [Suspect]
     Active Substance: HYDROCHLOROTHIAZIDE\OLMESARTAN MEDOXOMIL
     Indication: PRODUCT USED FOR UNKNOWN INDICATION
     Dosage: 25-12.5 MG, QD
     Dates: start: 20030801, end: 20141014

REACTIONS (8)
  - Pancreatitis acute [Recovered/Resolved]
  - Occult blood positive [Unknown]
  - Pseudomembranous colitis [Recovered/Resolved]
  - Duodenal ulcer [Unknown]
  - Ascites [Recovering/Resolving]
  - Hyponatraemia [Recovering/Resolving]
  - Haemorrhoids [Unknown]
  - Diverticulum [Unknown]

NARRATIVE: CASE EVENT DATE: 20031223
